FAERS Safety Report 9392798 (Version 1)
Quarter: 2013Q3

REPORT INFORMATION
  Report Type: Spontaneous
  Country: US (occurrence: None)
  Receive Date: 20130708
  Receipt Date: 20130708
  Transmission Date: 20140515
  Serious: No
  Sender: FDA-Public Use
  Company Number: None

PATIENT
  Age: 76 Year
  Sex: Female
  Weight: 52.62 kg

DRUGS (1)
  1. PROLIA INJECTION-AMGEN [Suspect]
     Dosage: FIRST OF 2 A YEAR
     Dates: start: 20130524

REACTIONS (2)
  - Local swelling [None]
  - Jaw disorder [None]
